FAERS Safety Report 17283118 (Version 1)
Quarter: 2020Q1

REPORT INFORMATION
  Report Type: Spontaneous
  Country: IT (occurrence: IT)
  Receive Date: 20200117
  Receipt Date: 20200117
  Transmission Date: 20200409
  Serious: Yes (Other)
  Sender: FDA-Public Use
  Company Number: IT-PFIZER INC-2020021942

PATIENT
  Age: 81 Year
  Sex: Male

DRUGS (1)
  1. TORVAST [Suspect]
     Active Substance: ATORVASTATIN
     Indication: HYPERCHOLESTEROLAEMIA
     Dosage: 10 MG, 1X/DAY
     Route: 048
     Dates: start: 20191011, end: 20191103

REACTIONS (1)
  - Carotid artery restenosis [Recovered/Resolved]

NARRATIVE: CASE EVENT DATE: 20191011
